FAERS Safety Report 20200250 (Version 1)
Quarter: 2021Q4

REPORT INFORMATION
  Report Type: Spontaneous
  Country: US (occurrence: US)
  Receive Date: 20211217
  Receipt Date: 20211217
  Transmission Date: 20220303
  Serious: No
  Sender: FDA-Public Use
  Company Number: US-PFIZER INC-202101401281

PATIENT
  Sex: Female

DRUGS (3)
  1. CARDURA [Suspect]
     Active Substance: DOXAZOSIN MESYLATE
     Indication: Blood pressure abnormal
     Dosage: 1 MG
  2. CARDURA [Suspect]
     Active Substance: DOXAZOSIN MESYLATE
     Dosage: 2 MG, 2X/DAY
  3. CARDURA [Suspect]
     Active Substance: DOXAZOSIN MESYLATE
     Dosage: 3 MG

REACTIONS (2)
  - Intentional product misuse [Unknown]
  - Visual impairment [Unknown]
